FAERS Safety Report 24568388 (Version 3)
Quarter: 2024Q4

REPORT INFORMATION
  Report Type: Spontaneous
  Country: CA (occurrence: CA)
  Receive Date: 20241031
  Receipt Date: 20241227
  Transmission Date: 20250114
  Serious: Yes (Hospitalization, Other)
  Sender: CELLTRION
  Company Number: CA-PFIZER INC-202400285848

PATIENT

DRUGS (5)
  1. INFLECTRA [Suspect]
     Active Substance: INFLIXIMAB-DYYB
     Indication: Sarcoidosis
     Dosage: 480 MG, INDUCTION WEEKS 0, 2, 6 MAINTENANCE Q 6 WEEKS
     Route: 042
     Dates: start: 20240910
  2. INFLECTRA [Suspect]
     Active Substance: INFLIXIMAB-DYYB
     Dosage: 480 MG, INDUCTION WEEKS 0, 2, 6 MAINTENANCE Q 6 WEEKS
     Route: 042
     Dates: start: 20241022
  3. INFLECTRA [Suspect]
     Active Substance: INFLIXIMAB-DYYB
     Dosage: 520 MG, 8 WEEKS AND 1 DAY, (EVERY 6 WEEKS)
     Route: 042
     Dates: start: 20241218
  4. INFLECTRA [Suspect]
     Active Substance: INFLIXIMAB-DYYB
     Dosage: 520 MG, 8 WEEKS AND 1 DAY, (EVERY 6 WEEKS)
     Route: 042
     Dates: start: 20241218
  5. PREDNISONE [Concomitant]
     Active Substance: PREDNISONE
     Dosage: 10 MG
     Route: 048

REACTIONS (4)
  - Gallbladder enlargement [Recovered/Resolved]
  - Gallbladder polyp [Recovered/Resolved]
  - Abdominal pain [Not Recovered/Not Resolved]
  - Weight increased [Unknown]

NARRATIVE: CASE EVENT DATE: 20240101
